FAERS Safety Report 4702768-3 (Version None)
Quarter: 2005Q2

REPORT INFORMATION
  Report Type: 
  Country: None (occurrence: None)
  Receive Date: 20050629
  Receipt Date: 20050622
  Transmission Date: 20051028
  Serious: Yes (Hospitalization)
  Sender: FDA-Public Use
  Company Number: PHBS2005US08998

PATIENT
  Age: 9 Year
  Sex: Male

DRUGS (4)
  1. METHYLPHENIDATE HCL [Suspect]
     Indication: ATTENTION DEFICIT/HYPERACTIVITY DISORDER
     Dosage: 15 MG, TID
     Route: 065
  2. RISPERIDONE [Concomitant]
     Dosage: 1.5 MG, TID
     Route: 065
  3. CLONIDINE [Concomitant]
     Dosage: 0.1 MG, QHS
     Route: 065
  4. VALPROIC ACID [Suspect]
     Dosage: 250 MG, TID
     Route: 065

REACTIONS (4)
  - DYSTONIA [None]
  - MUSCULOSKELETAL STIFFNESS [None]
  - OPISTHOTONUS [None]
  - PSYCHOTIC DISORDER [None]
